FAERS Safety Report 23945703 (Version 2)
Quarter: 2024Q4

REPORT INFORMATION
  Report Type: Spontaneous
  Country: JP (occurrence: JP)
  Receive Date: 20240606
  Receipt Date: 20241212
  Transmission Date: 20250115
  Serious: Yes (Hospitalization, Other)
  Sender: Phathom Pharmaceuticals
  Company Number: JP-PHATHOM PHARMACEUTICALS INC.-2024PHT00011

PATIENT
  Age: 79 Year
  Sex: Female
  Weight: 54.998 kg

DRUGS (5)
  1. VONOPRAZAN FUMARATE [Suspect]
     Active Substance: VONOPRAZAN FUMARATE
     Indication: Gastrooesophageal reflux disease
     Dosage: UNK, QD
     Route: 048
     Dates: start: 20231204, end: 20231216
  2. CEFDITOREN PIVOXIL [Suspect]
     Active Substance: CEFDITOREN PIVOXIL
     Indication: Product used for unknown indication
     Dosage: 100 MG, TID
     Route: 048
     Dates: start: 20231214, end: 20231216
  3. AZUNOL [Concomitant]
  4. DIETARY SUPPLEMENT\PROBIOTICS [Concomitant]
     Active Substance: DIETARY SUPPLEMENT\PROBIOTICS NOS
  5. CELECOXIB [Concomitant]
     Active Substance: CELECOXIB

REACTIONS (11)
  - Stevens-Johnson syndrome [Recovered/Resolved]
  - Prerenal failure [Unknown]
  - Colitis [Unknown]
  - Enteritis [Unknown]
  - Cholecystitis [Unknown]
  - Skin ulcer [Unknown]
  - Pain in extremity [Unknown]
  - Gait disturbance [Unknown]
  - Abdominal discomfort [Unknown]
  - Pyuria [Unknown]
  - Faeces discoloured [Unknown]

NARRATIVE: CASE EVENT DATE: 20231215
